FAERS Safety Report 22853017 (Version 7)
Quarter: 2023Q4

REPORT INFORMATION
  Report Type: Report from Study
  Country: US (occurrence: US)
  Receive Date: 20230823
  Receipt Date: 20231212
  Transmission Date: 20240110
  Serious: Yes (Other)
  Sender: FDA-Public Use
  Company Number: US-ASTELLAS-2023US024008

PATIENT
  Sex: Male

DRUGS (11)
  1. GILTERITINIB [Suspect]
     Active Substance: GILTERITINIB
     Indication: Chronic myelomonocytic leukaemia
     Route: 048
     Dates: start: 20230606, end: 202310
  2. GILTERITINIB [Suspect]
     Active Substance: GILTERITINIB
     Route: 048
     Dates: start: 202310
  3. VENCLEXTA [Suspect]
     Active Substance: VENETOCLAX
     Indication: Chronic myelomonocytic leukaemia
     Dosage: 100 MG, ONCE DAILY (ONE TABLET DAILY ON DAYS 1-14 OUT OF A 28 DAY CYCLE)
     Route: 048
     Dates: start: 20230606
  4. VENCLEXTA [Suspect]
     Active Substance: VENETOCLAX
     Route: 048
  5. VENCLEXTA [Suspect]
     Active Substance: VENETOCLAX
     Route: 048
  6. VENCLEXTA [Suspect]
     Active Substance: VENETOCLAX
     Dosage: 100 MG, ONCE DAILY (FOR DAYS 1 THROUGH 7)
     Route: 048
  7. AZACITIDINE [Suspect]
     Active Substance: AZACITIDINE
     Indication: Chronic myelomonocytic leukaemia
     Dosage: 1 DF, ONCE DAILY (DAYS 1 THROUGH 5)
     Route: 065
  8. LEVAQUIN [Concomitant]
     Active Substance: LEVOFLOXACIN
     Indication: Prophylaxis
     Dosage: UNK UNK, ONCE DAILY
     Route: 065
  9. LEVOTHYROXINE [Concomitant]
     Active Substance: LEVOTHYROXINE
     Indication: Product used for unknown indication
     Route: 065
  10. FINASTERIDE [Concomitant]
     Active Substance: FINASTERIDE
     Indication: Product used for unknown indication
     Route: 065
  11. VALTREX [Concomitant]
     Active Substance: VALACYCLOVIR HYDROCHLORIDE
     Indication: Product used for unknown indication
     Route: 065

REACTIONS (2)
  - Platelet count decreased [Recovered/Resolved]
  - Depressed mood [Unknown]
